FAERS Safety Report 20742979 (Version 4)
Quarter: 2022Q2

REPORT INFORMATION
  Report Type: Spontaneous
  Country: PL (occurrence: PL)
  Receive Date: 20220425
  Receipt Date: 20220523
  Transmission Date: 20220721
  Serious: Yes (Hospitalization)
  Sender: FDA-Public Use
  Company Number: PL-BEH-2022144299

PATIENT
  Sex: Male
  Weight: 3.14 kg

DRUGS (7)
  1. RHOPHYLAC [Suspect]
     Active Substance: HUMAN RHO(D) IMMUNE GLOBULIN
     Indication: Product used for unknown indication
     Dosage: UNK
     Route: 064
  2. RHOPHYLAC [Suspect]
     Active Substance: HUMAN RHO(D) IMMUNE GLOBULIN
     Indication: Product used for unknown indication
     Dosage: UNK
     Route: 064
  3. METHYLDOPA [Concomitant]
     Active Substance: METHYLDOPA
     Dosage: UNK
     Route: 064
     Dates: end: 20220302
  4. PROGESTERONE [Concomitant]
     Active Substance: PROGESTERONE
     Dosage: UNK
     Route: 064
     Dates: end: 20220208
  5. DUPHASTON [Concomitant]
     Active Substance: DYDROGESTERONE
     Dosage: UNK
     Route: 064
     Dates: end: 20220208
  6. ASMAG [Concomitant]
     Dosage: UNK
     Route: 064
     Dates: end: 20220208
  7. ACARD [Concomitant]
     Dosage: UNK
     Route: 064
     Dates: end: 20220129

REACTIONS (6)
  - Jaundice neonatal [Recovered/Resolved]
  - Foetal exposure during pregnancy [Recovered/Resolved]
  - Blood bilirubin increased [Recovered/Resolved]
  - Petechiae [Recovered/Resolved]
  - Foetal exposure during pregnancy [Recovered/Resolved]
  - Obstructed labour [Recovered/Resolved]

NARRATIVE: CASE EVENT DATE: 20220201
